FAERS Safety Report 16001553 (Version 1)
Quarter: 2019Q1

REPORT INFORMATION
  Report Type: Spontaneous
  Country: US (occurrence: US)
  Receive Date: 20190225
  Receipt Date: 20190225
  Transmission Date: 20190418
  Serious: Yes (Other)
  Sender: FDA-Public Use
  Company Number: US-MYLANLABS-2019M1016228

PATIENT
  Age: 70 Year
  Sex: Female

DRUGS (17)
  1. PREDNISOLONE. [Suspect]
     Active Substance: PREDNISOLONE
     Indication: POSTOPERATIVE CARE
     Dosage: PREDNISOLONE ACETATE 1% FOUR TIMES A DAY
     Route: 065
     Dates: start: 2017, end: 2017
  2. PREDNISOLONE. [Suspect]
     Active Substance: PREDNISOLONE
     Dosage: PREDNISOLONE ACETATE 1% TWICE A DAY
     Route: 065
     Dates: start: 2017
  3. POSACONAZOLE [Suspect]
     Active Substance: POSACONAZOLE
     Dosage: 400MG/10ML LOADING DOSE ONCE A DAY FOR NEXT TWO MONTHS
     Route: 048
     Dates: end: 20171130
  4. AMPHOTERICIN B. [Suspect]
     Active Substance: AMPHOTERICIN B
     Indication: CANDIDA INFECTION
     Dosage: TWO INJECTIONS
     Route: 050
     Dates: start: 2017
  5. OFLOXACIN. [Suspect]
     Active Substance: OFLOXACIN
     Indication: POSTOPERATIVE CARE
     Route: 065
     Dates: start: 2017, end: 2017
  6. AMPHOTERICIN B. [Suspect]
     Active Substance: AMPHOTERICIN B
     Indication: CANDIDA INFECTION
     Dosage: 10MICROGRAM/0.1ML
     Route: 050
     Dates: start: 2017, end: 2017
  7. AMPHOTERICIN B. [Suspect]
     Active Substance: AMPHOTERICIN B
     Dosage: EYE DROPS
     Route: 047
     Dates: start: 2017, end: 20171130
  8. BRIMONIDINE W/TIMOLOL [Concomitant]
     Active Substance: BRIMONIDINE TARTRATE\TIMOLOL MALEATE
     Indication: PRODUCT USED FOR UNKNOWN INDICATION
     Route: 065
  9. BRINZOLAMIDE [Concomitant]
     Active Substance: BRINZOLAMIDE
     Indication: PRODUCT USED FOR UNKNOWN INDICATION
     Route: 065
     Dates: start: 2017
  10. VORICONAZOLE. [Suspect]
     Active Substance: VORICONAZOLE
     Dosage: TWO INJECTIONS
     Route: 050
     Dates: start: 2017, end: 2017
  11. VORICONAZOLE. [Suspect]
     Active Substance: VORICONAZOLE
     Indication: CANDIDA INFECTION
     Dosage: EYE DROPS
     Route: 047
     Dates: start: 2017, end: 2017
  12. AMPHOTERICIN B. [Suspect]
     Active Substance: AMPHOTERICIN B
     Indication: CANDIDA INFECTION
     Dosage: EYE DROPS
     Route: 047
     Dates: start: 2017, end: 2017
  13. VORICONAZOLE. [Suspect]
     Active Substance: VORICONAZOLE
     Indication: CANDIDA INFECTION
     Dosage: 10MICROGRAM/0.1ML
     Route: 050
     Dates: start: 2017, end: 2017
  14. VORICONAZOLE. [Suspect]
     Active Substance: VORICONAZOLE
     Dosage: UNK
     Route: 050
     Dates: start: 2017, end: 2017
  15. VORICONAZOLE. [Suspect]
     Active Substance: VORICONAZOLE
     Indication: CANDIDA INFECTION
  16. PREDNISOLONE. [Suspect]
     Active Substance: PREDNISOLONE
     Dosage: PREDNISOLONE ACETATE 1% THRICE A DAY
     Route: 065
     Dates: start: 2017, end: 2017
  17. POSACONAZOLE [Suspect]
     Active Substance: POSACONAZOLE
     Indication: CANDIDA INFECTION
     Dosage: 400MG/10ML LOADING DOSE TWICE A DAY FOR FIRST WEEK
     Route: 048
     Dates: start: 2017

REACTIONS (2)
  - Off label use [Recovered/Resolved]
  - Endophthalmitis [Recovered/Resolved]
